FAERS Safety Report 12629640 (Version 1)
Quarter: 2016Q3

REPORT INFORMATION
  Report Type: Spontaneous
  Country: BR (occurrence: BR)
  Receive Date: 20160808
  Receipt Date: 20160808
  Transmission Date: 20161109
  Serious: Yes (Other)
  Sender: FDA-Public Use
  Company Number: BR-GLAXOSMITHKLINE-BR2016GSK111284

PATIENT
  Age: 42 Year
  Sex: Male
  Weight: 80 kg

DRUGS (2)
  1. RELVAR ELLIPTA [Suspect]
     Active Substance: FLUTICASONE FUROATE\VILANTEROL TRIFENATATE
     Indication: ASTHMA
     Dosage: 1 PUFF(S), QD
     Route: 055
     Dates: start: 20160729, end: 20160729
  2. AEROLIN [Suspect]
     Active Substance: ALBUTEROL
     Indication: ASTHMA
     Route: 055

REACTIONS (8)
  - Medication error [Recovered/Resolved]
  - Lung disorder [Unknown]
  - Expired product administered [Recovered/Resolved]
  - Hypothermia [Unknown]
  - Dizziness [Unknown]
  - Lip dry [Unknown]
  - Blood pressure fluctuation [Unknown]
  - Feeling hot [Unknown]

NARRATIVE: CASE EVENT DATE: 20160730
